FAERS Safety Report 24679934 (Version 1)
Quarter: 2024Q4

REPORT INFORMATION
  Report Type: Spontaneous
  Country: CH (occurrence: CH)
  Receive Date: 20241129
  Receipt Date: 20241129
  Transmission Date: 20250114
  Serious: Yes (Other)
  Sender: GILEAD
  Company Number: CH-GILEAD-2024-0695522

PATIENT
  Age: 64 Year
  Sex: Female

DRUGS (1)
  1. TRODELVY [Suspect]
     Active Substance: SACITUZUMAB GOVITECAN-HZIY
     Indication: Triple negative breast cancer
     Dosage: UNK
     Route: 065
     Dates: start: 20240415, end: 20240913

REACTIONS (1)
  - Disease progression [Not Recovered/Not Resolved]

NARRATIVE: CASE EVENT DATE: 20240913
